FAERS Safety Report 5547272-8 (Version None)
Quarter: 2007Q4

REPORT INFORMATION
  Report Type: 
  Country: None (occurrence: None)
  Receive Date: 20071128
  Receipt Date: 20061218
  Transmission Date: 20080405
  Serious: Yes (Other)
  Sender: FDA-Public Use
  Company Number: 2006154513

PATIENT
  Age: 40 Year
  Sex: Male
  Weight: 102.1 kg

DRUGS (1)
  1. LIPITOR [Suspect]
     Indication: BLOOD CHOLESTEROL INCREASED
     Dosage: 10 MG (10 MG, 1 IN 1 D)

REACTIONS (3)
  - HEPATIC ENZYME INCREASED [None]
  - MUSCLE SPASMS [None]
  - PAIN IN EXTREMITY [None]
